FAERS Safety Report 4590030-1 (Version None)
Quarter: 2005Q1

REPORT INFORMATION
  Report Type: 
  Country: None (occurrence: None)
  Receive Date: 20050216
  Receipt Date: 20050131
  Transmission Date: 20050727
  Serious: Yes (Death)
  Sender: FDA-Public Use
  Company Number: B0349822A

PATIENT
  Age: 15 Year
  Sex: Male

DRUGS (7)
  1. WELLBUTRIN SR [Suspect]
     Dosage: ORAL
     Route: 048
  2. ASPIRIN [Suspect]
     Dosage: ORAL
     Route: 048
  3. ACETAMINOPHEN [Suspect]
     Dosage: ORAL
     Route: 048
  4. CAFFEINE (CAFFEINE) [Suspect]
     Dosage: ORAL
     Route: 048
  5. FLUOXETINE [Suspect]
     Dosage: ORAL
     Route: 048
  6. VALPROIC ACID [Suspect]
     Dosage: ORAL
     Route: 048
  7. SERTRALINE HCL [Suspect]
     Dosage: ORAL
     Route: 048

REACTIONS (17)
  - AGGRESSION [None]
  - AGITATION [None]
  - ATRIOVENTRICULAR BLOCK [None]
  - BLOOD CHLORIDE DECREASED [None]
  - BLOOD CREATINE PHOSPHOKINASE INCREASED [None]
  - BLOOD CREATINE PHOSPHOKINASE MB INCREASED [None]
  - BLOOD GLUCOSE INCREASED [None]
  - BLOOD POTASSIUM DECREASED [None]
  - BODY TEMPERATURE INCREASED [None]
  - BRADYCARDIA [None]
  - CARDIAC ARREST [None]
  - COMPLETED SUICIDE [None]
  - CONVULSION [None]
  - INCOHERENT [None]
  - MUSCLE RIGIDITY [None]
  - TOXICOLOGIC TEST ABNORMAL [None]
  - VENTRICULAR EXTRASYSTOLES [None]
